FAERS Safety Report 7027220-4 (Version None)
Quarter: 2010Q4

REPORT INFORMATION
  Report Type: 
  Country: None (occurrence: None)
  Receive Date: 20101001
  Receipt Date: 20101001
  Transmission Date: 20110411
  Serious: No
  Sender: FDA-Public Use
  Company Number: None

PATIENT
  Age: 43 Year
  Sex: Female
  Weight: 74.8435 kg

DRUGS (1)
  1. LEVAQUIN [Suspect]
     Indication: EAR INFECTION
     Dosage: 1 PILL ONE TIME DAILY PO
     Route: 048
     Dates: start: 20100727, end: 20100802

REACTIONS (4)
  - ANXIETY [None]
  - DEPRESSION [None]
  - FATIGUE [None]
  - TENDON DISORDER [None]
